FAERS Safety Report 4725946-6 (Version None)
Quarter: 2005Q3

REPORT INFORMATION
  Report Type: 
  Country: None (occurrence: None)
  Receive Date: 20050727
  Receipt Date: 20050715
  Transmission Date: 20060218
  Serious: Yes (Other)
  Sender: FDA-Public Use
  Company Number: BPC-ZN-05-419

PATIENT
  Age: 38 Year
  Sex: Female
  Weight: 54.5 kg

DRUGS (1)
  1. ZYBAN [Suspect]
     Indication: SMOKING CESSATION THERAPY
     Dosage: 150MG TWICE PER DAY
     Route: 048
     Dates: start: 20050613

REACTIONS (3)
  - PRURITUS GENERALISED [None]
  - RASH [None]
  - SENSATION OF FOREIGN BODY [None]
